FAERS Safety Report 4635477-X (Version None)
Quarter: 2005Q2

REPORT INFORMATION
  Report Type: 
  Country: None (occurrence: None)
  Receive Date: 20050413
  Receipt Date: 20050405
  Transmission Date: 20051028
  Serious: Yes (Other)
  Sender: FDA-Public Use
  Company Number: 2005054995

PATIENT
  Age: 59 Year
  Sex: Female
  Weight: 65 kg

DRUGS (1)
  1. LIPITOR [Suspect]
     Indication: METABOLIC DISORDER
     Dosage: 10 MG (10 MG, 1 IN 1 D), ORAL
     Route: 048
     Dates: start: 19980320

REACTIONS (6)
  - CHEST PAIN [None]
  - DYSPHAGIA [None]
  - HEADACHE [None]
  - PARAESTHESIA ORAL [None]
  - RASH PRURITIC [None]
  - TONGUE OEDEMA [None]
